FAERS Safety Report 8076343-X (Version None)
Quarter: 2012Q1

REPORT INFORMATION
  Report Type: 
  Country: None (occurrence: None)
  Receive Date: 20120127
  Receipt Date: 20120126
  Transmission Date: 20120608
  Serious: Yes (Other)
  Sender: FDA-Public Use
  Company Number: SG-BAYER-2012-008466

PATIENT
  Age: 50 Year
  Sex: Female

DRUGS (4)
  1. ACETYLSALICYLIC ACID SRT [Suspect]
  2. IBUPROFEN [Suspect]
  3. ACETAMINOPHEN [Suspect]
  4. AMITRIPTYLINE HCL [Suspect]

REACTIONS (1)
  - ANGIOEDEMA [None]
